FAERS Safety Report 4836534-5 (Version None)
Quarter: 2005Q4

REPORT INFORMATION
  Report Type: 
  Country: None (occurrence: None)
  Receive Date: 20051118
  Receipt Date: 20051104
  Transmission Date: 20060501
  Serious: Yes (Hospitalization)
  Sender: FDA-Public Use
  Company Number: 2005P1000524

PATIENT
  Age: 54 Year
  Sex: Male
  Weight: 86 kg

DRUGS (8)
  1. RETEPLASE (RETEPLASE) [Suspect]
     Indication: ACUTE MYOCARDIAL INFARCTION
     Dosage: IV
     Route: 042
     Dates: start: 20041124
  2. ABCIXIMAB (ABCIXIMAB) [Suspect]
     Indication: ACUTE MYOCARDIAL INFARCTION
     Dosage: IV
     Route: 042
     Dates: start: 20041124
  3. ASPIRIN [Concomitant]
  4. CLOPIDOGREL BISULFATE [Concomitant]
  5. METOPROLOL TARTRATE [Concomitant]
  6. ORGANIC NITRATES [Concomitant]
  7. RAMIPRIL [Concomitant]
  8. SIMVASTATIN [Concomitant]

REACTIONS (1)
  - CORONARY ARTERY STENOSIS [None]
